FAERS Safety Report 19273242 (Version 2)
Quarter: 2021Q3

REPORT INFORMATION
  Report Type: Report from Study
  Country: None (occurrence: US)
  Receive Date: 20210518
  Receipt Date: 20210813
  Transmission Date: 20211014
  Serious: Yes (Other)
  Sender: FDA-Public Use
  Company Number: US-ABBVIE-21K-163-3800666-00

PATIENT
  Age: 83 Year
  Sex: Female

DRUGS (4)
  1. VENCLEXTA [Suspect]
     Active Substance: VENETOCLAX
     Route: 048
  2. VENCLEXTA [Suspect]
     Active Substance: VENETOCLAX
     Route: 048
     Dates: start: 20210310, end: 2021
  3. VENCLEXTA [Suspect]
     Active Substance: VENETOCLAX
     Route: 048
     Dates: start: 2021
  4. VENCLEXTA [Suspect]
     Active Substance: VENETOCLAX
     Indication: CHRONIC LYMPHOCYTIC LEUKAEMIA
     Dosage: 10MG WALLET CARD
     Route: 048
     Dates: start: 20201231, end: 20210301

REACTIONS (7)
  - Blood uric acid increased [Not Recovered/Not Resolved]
  - Transfusion [Not Recovered/Not Resolved]
  - Dyspnoea [Unknown]
  - Pulmonary oedema [Recovering/Resolving]
  - Weight decreased [Not Recovered/Not Resolved]
  - Abdominal pain upper [Not Recovered/Not Resolved]
  - Laboratory test abnormal [Unknown]

NARRATIVE: CASE EVENT DATE: 20210506
